FAERS Safety Report 14114353 (Version 1)
Quarter: 2017Q4

REPORT INFORMATION
  Report Type: Spontaneous
  Country: US (occurrence: US)
  Receive Date: 20171023
  Receipt Date: 20171023
  Transmission Date: 20180321
  Serious: No
  Sender: FDA-Public Use
  Company Number: US-PFIZER INC-2017452309

PATIENT
  Age: 57 Year
  Sex: Female
  Weight: 91.63 kg

DRUGS (2)
  1. GENOTROPIN [Suspect]
     Active Substance: SOMATROPIN
     Indication: HYPOPITUITARISM
     Dosage: 0.3 MG, DAILY (ONCE AT NIGHT)
     Route: 058
     Dates: start: 20170826
  2. GENOTROPIN [Suspect]
     Active Substance: SOMATROPIN
     Indication: HORMONE REPLACEMENT THERAPY
     Dosage: 0.1 UNK, 1X/DAY
     Route: 058
     Dates: end: 20170929

REACTIONS (7)
  - Vision blurred [Unknown]
  - Fatigue [Recovering/Resolving]
  - Feeling abnormal [Unknown]
  - Carpal tunnel syndrome [Recovering/Resolving]
  - Blood glucose increased [Recovering/Resolving]
  - Thirst [Unknown]
  - Somnolence [Recovering/Resolving]

NARRATIVE: CASE EVENT DATE: 20170826
